FAERS Safety Report 7914341-4 (Version None)
Quarter: 2011Q4

REPORT INFORMATION
  Report Type: 
  Country: None (occurrence: None)
  Receive Date: 20111115
  Receipt Date: 20111109
  Transmission Date: 20120403
  Serious: Yes (Disabling)
  Sender: FDA-Public Use
  Company Number: US-B.I. PHARMACEUTICALS,INC./RIDGEFIELD-2011-BP-23748BP

PATIENT
  Sex: Male

DRUGS (11)
  1. PRADAXA [Suspect]
     Indication: ATRIAL FIBRILLATION
     Dosage: 300 MG
     Route: 048
     Dates: start: 20110923, end: 20111001
  2. PRADAXA [Suspect]
     Indication: ANTICOAGULANT THERAPY
  3. FUROSEMIDE [Concomitant]
     Indication: CARDIAC FAILURE CONGESTIVE
  4. LANOXIN [Concomitant]
     Indication: CARDIAC FAILURE CONGESTIVE
     Dosage: 0.125 MG
  5. METOPROLOL SUCCINATE [Concomitant]
     Indication: ATRIAL FIBRILLATION
     Dosage: 100 MG
  6. COUMADIN [Concomitant]
  7. ALLOPURINOL [Concomitant]
     Indication: GOUT
     Dosage: 300 MG
  8. SPIRONOLACTONE [Concomitant]
     Indication: CARDIAC FAILURE CONGESTIVE
     Dosage: 25 MG
  9. MICRO-K [Concomitant]
     Dosage: 60 MEQ
  10. VITAMIN D [Concomitant]
  11. LASIX [Concomitant]
     Dosage: 60 MG

REACTIONS (1)
  - HAEMATURIA [None]
